FAERS Safety Report 6007291-4 (Version None)
Quarter: 2008Q4

REPORT INFORMATION
  Report Type: 
  Country: None (occurrence: None)
  Receive Date: 20081217
  Receipt Date: 20080225
  Transmission Date: 20090506
  Serious: No
  Sender: FDA-Public Use
  Company Number: US-ASTRAZENECA-2008UW03942

PATIENT
  Age: 75 Year

DRUGS (3)
  1. CRESTOR [Suspect]
     Route: 048
     Dates: start: 20080210
  2. ALLOPURINOL [Concomitant]
  3. MICARDIS [Concomitant]

REACTIONS (1)
  - OEDEMA PERIPHERAL [None]
